FAERS Safety Report 10510042 (Version 1)
Quarter: 2014Q4

REPORT INFORMATION
  Report Type: Spontaneous
  Country: US (occurrence: None)
  Receive Date: 20141009
  Receipt Date: 20141009
  Transmission Date: 20150528
  Serious: Yes (Hospitalization)
  Sender: FDA-Public Use
  Company Number: None

PATIENT
  Age: 42 Year
  Sex: Male
  Weight: 91.4 kg

DRUGS (3)
  1. BELATACEPT [Concomitant]
     Active Substance: BELATACEPT
  2. CELLCEPT [Suspect]
     Active Substance: MYCOPHENOLATE MOFETIL\MYCOPHENOLATE MOFETIL HYDROCHLORIDE
     Indication: RENAL TRANSPLANT
     Route: 048
     Dates: end: 20140919
  3. NULOJIX [Suspect]
     Active Substance: BELATACEPT
     Indication: RENAL TRANSPLANT
     Route: 042
     Dates: end: 20141003

REACTIONS (11)
  - Melaena [None]
  - Ataxia [None]
  - Gait disturbance [None]
  - Faeces discoloured [None]
  - Haemoglobin decreased [None]
  - Duodenitis [None]
  - Gastrointestinal haemorrhage [None]
  - Haematocrit decreased [None]
  - Helicobacter infection [None]
  - Diarrhoea [None]
  - Gastritis [None]

NARRATIVE: CASE EVENT DATE: 20141003
